FAERS Safety Report 8673956 (Version 3)
Quarter: 2012Q4

REPORT INFORMATION
  Report Type: 
  Country: US (occurrence: US)
  Receive Date: 20120719
  Receipt Date: 20120918
  Transmission Date: 20130627
  Serious: Yes (Other)
  Sender: FDA-Public Use
  Company Number: US-PFIZER INC-2012173914

PATIENT
  Age: 49 Year
  Sex: Male
  Weight: 79.37 kg

DRUGS (3)
  1. CELEBREX [Suspect]
     Indication: POSTOPERATIVE CARE
     Dosage: UNK, 2x/day
     Route: 048
     Dates: start: 2000, end: 200009
  2. CELEBREX [Suspect]
     Indication: HEADACHE
  3. PEPCID [Suspect]
     Indication: DYSPEPSIA
     Dosage: UNK

REACTIONS (2)
  - Gastric haemorrhage [Unknown]
  - Haematochezia [Unknown]
